FAERS Safety Report 12443398 (Version 2)
Quarter: 2016Q2

REPORT INFORMATION
  Report Type: Spontaneous
  Country: US (occurrence: US)
  Receive Date: 20160607
  Receipt Date: 20160610
  Transmission Date: 20160815
  Serious: Yes (Other)
  Sender: FDA-Public Use
  Company Number: US-PFIZER INC-2016288408

PATIENT
  Age: 82 Year
  Sex: Female
  Weight: 73 kg

DRUGS (1)
  1. PREMARIN [Suspect]
     Active Substance: ESTROGENS, CONJUGATED
     Indication: HORMONE REPLACEMENT THERAPY
     Dosage: 0.625 MG, 1X/DAY
     Route: 048
     Dates: start: 1977

REACTIONS (6)
  - Depression [Recovered/Resolved]
  - Crying [Unknown]
  - Drug dose omission [Unknown]
  - Lipids abnormal [Unknown]
  - Hypertension [Recovered/Resolved]
  - Heart rate increased [Unknown]
